FAERS Safety Report 19472434 (Version 10)
Quarter: 2022Q2

REPORT INFORMATION
  Report Type: Spontaneous
  Country: PL (occurrence: None)
  Receive Date: 20210629
  Receipt Date: 20220609
  Transmission Date: 20220721
  Serious: Yes (Hospitalization, Other)
  Sender: FDA-Public Use
  Company Number: PL-ROCHE-2855728

PATIENT
  Age: 1 Year
  Sex: Female
  Weight: 6.4 kg

DRUGS (2)
  1. HEMLIBRA [Suspect]
     Active Substance: EMICIZUMAB-KXWH
     Indication: Product used for unknown indication
     Route: 058
     Dates: start: 20210301
  2. CONVULEX (POLAND) [Concomitant]

REACTIONS (13)
  - Epilepsy [Unknown]
  - Gastrointestinal viral infection [Recovered/Resolved]
  - Blood glucose decreased [Unknown]
  - Activated partial thromboplastin time prolonged [Unknown]
  - Activated partial thromboplastin time prolonged [Unknown]
  - Underweight [Unknown]
  - Gastroenteritis [Unknown]
  - Catheter site bruise [Unknown]
  - Pyrexia [Unknown]
  - Antiphospholipid antibodies [Unknown]
  - COVID-19 [Unknown]
  - Gastroenteritis salmonella [Unknown]
  - Rhinitis [Unknown]

NARRATIVE: CASE EVENT DATE: 20210601
